FAERS Safety Report 23417437 (Version 1)
Quarter: 2024Q1

REPORT INFORMATION
  Report Type: Spontaneous
  Country: US (occurrence: US)
  Receive Date: 20240118
  Receipt Date: 20240118
  Transmission Date: 20240410
  Serious: No
  Sender: FDA-Public Use
  Company Number: US-INCYTE CORPORATION-2024IN000168

PATIENT

DRUGS (1)
  1. JAKAFI [Suspect]
     Active Substance: RUXOLITINIB
     Indication: Immunodeficiency
     Dosage: 5 MILLIGRAM, BID
     Route: 048

REACTIONS (16)
  - Fatigue [Unknown]
  - Bone marrow disorder [Unknown]
  - White blood cell count increased [Unknown]
  - Splenomegaly [Unknown]
  - Constipation [Unknown]
  - Off label use [Unknown]
  - Bone pain [Unknown]
  - Arthralgia [Unknown]
  - Hypophagia [Recovering/Resolving]
  - Decreased appetite [Recovering/Resolving]
  - Depressed mood [Unknown]
  - Pain [Unknown]
  - Myalgia [Unknown]
  - Neck pain [Unknown]
  - Pain in extremity [Unknown]
  - Increased tendency to bruise [Unknown]
